FAERS Safety Report 16909058 (Version 2)
Quarter: 2019Q4

REPORT INFORMATION
  Report Type: Spontaneous
  Country: US (occurrence: US)
  Receive Date: 20191011
  Receipt Date: 20191126
  Transmission Date: 20200122
  Serious: No
  Sender: FDA-Public Use
  Company Number: US-VERTEX PHARMACEUTICALS-2019-009599

PATIENT
  Age: 55 Year
  Sex: Female

DRUGS (24)
  1. LORATADINE. [Concomitant]
     Active Substance: LORATADINE
  2. TOPAMAX [Concomitant]
     Active Substance: TOPIRAMATE
  3. TRAMADOL HYDROCHLORIDE. [Concomitant]
     Active Substance: TRAMADOL HYDROCHLORIDE
  4. AZTREONAM LYSINE [Suspect]
     Active Substance: AZTREONAM LYSINE
     Indication: CYSTIC FIBROSIS
     Dosage: 75 MG, TID, FOR 28 DAYS ON AND 28 DAYS OFF
     Dates: start: 20150421
  5. PANCREAZE [Concomitant]
     Active Substance: PANCRELIPASE AMYLASE\PANCRELIPASE LIPASE\PANCRELIPASE PROTEASE
  6. QUETIAPINE. [Concomitant]
     Active Substance: QUETIAPINE
  7. SODIUM CHLORIDE. [Concomitant]
     Active Substance: SODIUM CHLORIDE
  8. ACETYLCYSTEINE. [Concomitant]
     Active Substance: ACETYLCYSTEINE
  9. SALINEX [SODIUM CHLORIDE] [Concomitant]
     Active Substance: SODIUM CHLORIDE
  10. KALYDECO [Suspect]
     Active Substance: IVACAFTOR
     Indication: CYSTIC FIBROSIS
     Dosage: 150 MG, BID
     Route: 048
     Dates: start: 20150702
  11. DICLOFENAC [Concomitant]
     Active Substance: DICLOFENAC
  12. GUANFACINE. [Concomitant]
     Active Substance: GUANFACINE
  13. ADVAIR HFA [Concomitant]
     Active Substance: FLUTICASONE PROPIONATE\SALMETEROL XINAFOATE
  14. CALCIUM CITRATE [Concomitant]
     Active Substance: CALCIUM CITRATE
  15. FERROUS SULFATE. [Concomitant]
     Active Substance: FERROUS SULFATE
  16. PULMOZYME [Concomitant]
     Active Substance: DORNASE ALFA
  17. ZOLOFT [Concomitant]
     Active Substance: SERTRALINE HYDROCHLORIDE
  18. CLONAZEPAM. [Concomitant]
     Active Substance: CLONAZEPAM
  19. VITAMIN D3 [Concomitant]
     Active Substance: CHOLECALCIFEROL
  20. AZITHROMYCIN ANHYDROUS. [Concomitant]
     Active Substance: AZITHROMYCIN ANHYDROUS
  21. MUCINEX [Concomitant]
     Active Substance: GUAIFENESIN
  22. NORCO [Concomitant]
     Active Substance: ACETAMINOPHEN\HYDROCODONE BITARTRATE
  23. PROTONIX [OMEPRAZOLE] [Concomitant]
     Active Substance: OMEPRAZOLE
  24. URSODIOL. [Concomitant]
     Active Substance: URSODIOL

REACTIONS (4)
  - Hypotension [Unknown]
  - Dyspepsia [Unknown]
  - Ligament sprain [Unknown]
  - Fall [Unknown]

NARRATIVE: CASE EVENT DATE: 201910
